FAERS Safety Report 5286779-8 (Version None)
Quarter: 2007Q1

REPORT INFORMATION
  Report Type: 
  Country: None (occurrence: None)
  Receive Date: 20070116
  Receipt Date: 20061114
  Transmission Date: 20070707
  Serious: No
  Sender: FDA-Public Use
  Company Number: 2006SP004055

PATIENT
  Age: 66 Year
  Sex: Female
  Weight: 98.8842 kg

DRUGS (18)
  1. LUNESTA [Suspect]
     Dosage: SEE IMAGE
     Route: 048
     Dates: start: 20060501, end: 20060901
  2. LUNESTA [Suspect]
     Dosage: SEE IMAGE
     Route: 048
     Dates: start: 20060901, end: 20061001
  3. HYDROCODONE [Concomitant]
  4. FENTANY; [Concomitant]
  5. POTASSIUM CHLORIDE [Concomitant]
  6. FUROSEMIDE [Concomitant]
  7. PLAVIX [Concomitant]
  8. VITAMIN D [Concomitant]
  9. PROMETHAZINE HCL [Concomitant]
  10. DOXAZOSIN MESYLATE [Concomitant]
  11. LOVASTATIN [Concomitant]
  12. FOLIC ACID [Concomitant]
  13. LISINOPRIL [Concomitant]
  14. LORATADINE [Concomitant]
  15. LEVOXYL [Concomitant]
  16. CALCIUM [Concomitant]
  17. CENTRUM [Concomitant]
  18. FISH OIL [Concomitant]

REACTIONS (4)
  - ABNORMAL BEHAVIOUR [None]
  - DIZZINESS [None]
  - DRUG INEFFECTIVE [None]
  - MIDDLE INSOMNIA [None]
